FAERS Safety Report 21055348 (Version 2)
Quarter: 2022Q3

REPORT INFORMATION
  Report Type: Spontaneous
  Country: IN (occurrence: IN)
  Receive Date: 20220708
  Receipt Date: 20220723
  Transmission Date: 20221027
  Serious: Yes (Hospitalization)
  Sender: FDA-Public Use
  Company Number: IN-NOVARTISPH-NVSC2022IN150818

PATIENT
  Age: 35 Year
  Sex: Male

DRUGS (3)
  1. SIMULECT [Suspect]
     Active Substance: BASILIXIMAB
     Indication: Renal transplant
     Dosage: 20 MG
     Route: 065
     Dates: start: 20220514
  2. SIMULECT [Suspect]
     Active Substance: BASILIXIMAB
     Dosage: 20 MG
     Route: 065
     Dates: start: 20220518, end: 20220519
  3. DEXTROSE [Concomitant]
     Active Substance: DEXTROSE
     Indication: Product used for unknown indication
     Dosage: UNK (20 MG INN 100 ML N.S)
     Route: 042

REACTIONS (1)
  - Kidney transplant rejection [Unknown]

NARRATIVE: CASE EVENT DATE: 20220623
